FAERS Safety Report 14648203 (Version 5)
Quarter: 2019Q4

REPORT INFORMATION
  Report Type: Spontaneous
  Country: US (occurrence: US)
  Receive Date: 20180316
  Receipt Date: 20191031
  Transmission Date: 20200122
  Serious: Yes (Other)
  Sender: FDA-Public Use
  Company Number: US-AEGERION PHARMACEUTICAL, INC-AEGR003677

PATIENT
  Age: 12 Year
  Sex: Female

DRUGS (7)
  1. LISINOPRIL. [Concomitant]
     Active Substance: LISINOPRIL
     Indication: CARDIOMYOPATHY
     Dosage: 10 MG, QD
     Route: 048
  2. MYALEPT [Suspect]
     Active Substance: METRELEPTIN
     Indication: CONGENITAL GENERALISED LIPODYSTROPHY
     Dosage: 1.25 MG, QD
     Dates: start: 2013
  3. INSULIN REGULAR                    /01223201/ [Concomitant]
     Active Substance: INSULIN BEEF
     Indication: DIABETES MELLITUS
     Dosage: 600 UNITS, TID
     Route: 058
     Dates: start: 201803
  4. NOVOLOG [Concomitant]
     Active Substance: INSULIN ASPART
     Indication: DIABETES MELLITUS
     Dosage: 100-200 UNITS, AC AND HS
     Route: 058
     Dates: start: 201701
  5. OMEGA-3 FATTY ACIDS [Concomitant]
     Active Substance: OMEGA-3 FATTY ACIDS
     Indication: LIPIDS
     Dosage: 1000 MG, QD
     Route: 048
  6. MYALEPT [Suspect]
     Active Substance: METRELEPTIN
     Dosage: 6.25 MG, QD
     Route: 058
     Dates: start: 201412
  7. TRESIBA [Concomitant]
     Active Substance: INSULIN DEGLUDEC
     Indication: DIABETES MELLITUS
     Dosage: 600 UNITS, QD
     Route: 058
     Dates: start: 201801, end: 201803

REACTIONS (7)
  - Atrophy [Unknown]
  - Neutralising antibodies positive [Not Recovered/Not Resolved]
  - Diabetes mellitus [Unknown]
  - Therapy cessation [Unknown]
  - Hepatic steatosis [Unknown]
  - Condition aggravated [Unknown]
  - Hypertriglyceridaemia [Unknown]

NARRATIVE: CASE EVENT DATE: 20180410
